FAERS Safety Report 10914800 (Version 3)
Quarter: 2015Q2

REPORT INFORMATION
  Report Type: Spontaneous
  Country: US (occurrence: US)
  Receive Date: 20150313
  Receipt Date: 20150522
  Transmission Date: 20150821
  Serious: Yes (Other)
  Sender: FDA-Public Use
  Company Number: US-ALLERGAN-1504241US

PATIENT
  Age: 75 Year
  Sex: Female

DRUGS (1)
  1. RESTASIS [Suspect]
     Active Substance: CYCLOSPORINE
     Indication: DRY EYE
     Dosage: UNK UNK, BID
     Route: 047
     Dates: start: 2013

REACTIONS (6)
  - Wrong technique in drug usage process [Unknown]
  - Product quality issue [Unknown]
  - Ocular hyperaemia [Unknown]
  - Vitreous floaters [Unknown]
  - Eye irritation [Unknown]
  - Upper limb fracture [Unknown]
